FAERS Safety Report 9743059 (Version 2)
Quarter: 2013Q4

REPORT INFORMATION
  Report Type: Spontaneous
  Country: US (occurrence: US)
  Receive Date: 20131210
  Receipt Date: 20131210
  Transmission Date: 20140711
  Serious: No
  Sender: FDA-Public Use
  Company Number: US-TEVA-331862USA

PATIENT
  Age: 36 Year
  Sex: Female
  Weight: 53.12 kg

DRUGS (3)
  1. PARAGARD 380A [Suspect]
     Indication: CONTRACEPTION
     Route: 015
     Dates: start: 201110
  2. LEVOTHYROXINE [Concomitant]
     Dosage: 25  DAILY;
     Route: 048
     Dates: start: 2009
  3. PRENATAL VITAMIN [Concomitant]
     Dates: start: 20100701

REACTIONS (2)
  - Live birth [Unknown]
  - Drug ineffective [Unknown]
